FAERS Safety Report 20709503 (Version 2)
Quarter: 2022Q2

REPORT INFORMATION
  Report Type: Report from Study
  Country: BR (occurrence: BR)
  Receive Date: 20220414
  Receipt Date: 20220510
  Transmission Date: 20220721
  Serious: Yes (Other)
  Sender: FDA-Public Use
  Company Number: BR-JNJFOC-20220415914

PATIENT
  Age: 39 Year
  Sex: Female

DRUGS (4)
  1. SIMPONI [Suspect]
     Active Substance: GOLIMUMAB
     Indication: Ankylosing spondylitis
     Dosage: 50 MG
     Route: 058
     Dates: start: 20200702
  2. SIMPONI [Suspect]
     Active Substance: GOLIMUMAB
  3. PREGABALIN [Concomitant]
     Active Substance: PREGABALIN
  4. CYCLOBENZAPRINE [Concomitant]
     Active Substance: CYCLOBENZAPRINE

REACTIONS (10)
  - Foot fracture [Unknown]
  - Tendonitis [Unknown]
  - Chondromalacia [Unknown]
  - Bone marrow oedema [Unknown]
  - Osteoarthritis [Unknown]
  - Bone disorder [Recovered/Resolved]
  - Product dose omission issue [Unknown]
  - Accidental exposure to product [Unknown]
  - Product leakage [Unknown]
  - Infection [Unknown]

NARRATIVE: CASE EVENT DATE: 20211201
